FAERS Safety Report 8876508 (Version 1)
Quarter: 2012Q4

REPORT INFORMATION
  Report Type: 
  Country: US (occurrence: US)
  Receive Date: 20121023
  Receipt Date: 20121023
  Transmission Date: 20130627
  Serious: No
  Sender: FDA-Public Use
  Company Number: US-ASTELLAS-2012US004511

PATIENT

DRUGS (7)
  1. PROGRAF [Suspect]
     Indication: LIVER TRANSPLANT
     Dosage: 6 mg, bid
     Route: 048
     Dates: start: 2009
  2. PROGRAF [Suspect]
     Dosage: 1-2 mg, qod
     Route: 048
  3. LYRICA [Suspect]
     Indication: SCIATIC NERVE NEUROPATHY
     Dosage: 50 mg, UID/QD
     Route: 048
     Dates: start: 2007
  4. LYRICA [Suspect]
     Dosage: 100 mg, UID/QD
     Route: 048
     Dates: start: 2009
  5. BACTRIM [Concomitant]
     Indication: LIVER TRANSPLANT
     Dosage: 400/80 mg, Unknown/D
     Route: 065
     Dates: start: 2009
  6. UNSPECIFIED MEDICATIONS [Concomitant]
     Indication: PRODUCT USED FOR UNKNOWN INDICATION
     Dosage: UNK
     Route: 065
  7. NIFEDICAL [Concomitant]
     Indication: HYPERTENSION
     Dosage: UNK
     Route: 065

REACTIONS (1)
  - No adverse event [Unknown]
